FAERS Safety Report 19916962 (Version 1)
Quarter: 2021Q4

REPORT INFORMATION
  Report Type: Spontaneous
  Country: US (occurrence: US)
  Receive Date: 20211005
  Receipt Date: 20211005
  Transmission Date: 20220303
  Serious: Yes (Hospitalization)
  Sender: FDA-Public Use
  Company Number: US-DRREDDYS-LIT/USA/21/0142317

PATIENT
  Age: 3 Month
  Sex: Female

DRUGS (3)
  1. FENTANYL CITRATE [Suspect]
     Active Substance: FENTANYL CITRATE
     Indication: Analgesic therapy
  2. DIPHENHYDRAMINE HYDROCHLORIDE [Suspect]
     Active Substance: DIPHENHYDRAMINE HYDROCHLORIDE
     Indication: Pruritus
     Dosage: IV DIPHENHYDRAMINE 5MG (1.25 MG/KG) OVER 1 MINUTE
     Route: 042
  3. DIPHENHYDRAMINE HYDROCHLORIDE [Suspect]
     Active Substance: DIPHENHYDRAMINE HYDROCHLORIDE
     Indication: Sedation

REACTIONS (6)
  - Electrocardiogram QRS complex prolonged [Unknown]
  - Cardiac failure [Unknown]
  - Therapy non-responder [Unknown]
  - Cardiac arrest [Unknown]
  - Pruritus [Unknown]
  - Apnoea [Unknown]
